FAERS Safety Report 16796956 (Version 3)
Quarter: 2019Q4

REPORT INFORMATION
  Report Type: Spontaneous
  Country: JP (occurrence: JP)
  Receive Date: 20190911
  Receipt Date: 20191017
  Transmission Date: 20200122
  Serious: Yes (Death, Hospitalization, Other)
  Sender: FDA-Public Use
  Company Number: JP-AMGEN-JPNSP2019150185

PATIENT
  Age: 7 Decade
  Sex: Female

DRUGS (1)
  1. VECTIBIX [Suspect]
     Active Substance: PANITUMUMAB
     Indication: COLON CANCER
     Dosage: UNK
     Route: 041
     Dates: start: 201908, end: 201908

REACTIONS (3)
  - Colon cancer [Fatal]
  - Disease progression [Fatal]
  - Ascites [Fatal]

NARRATIVE: CASE EVENT DATE: 201908
